FAERS Safety Report 18623357 (Version 1)
Quarter: 2020Q4

REPORT INFORMATION
  Report Type: Spontaneous
  Country: US (occurrence: US)
  Receive Date: 20201216
  Receipt Date: 20201216
  Transmission Date: 20210114
  Serious: Yes (Other)
  Sender: FDA-Public Use
  Company Number: US-SA-2020SA354828

PATIENT

DRUGS (27)
  1. MACROGOL [Suspect]
     Active Substance: POLYETHYLENE GLYCOLS
     Dosage: UNK
     Route: 065
  2. MIRTAZAPINE. [Suspect]
     Active Substance: MIRTAZAPINE
     Dosage: 15 MG
     Route: 065
  3. DICLOFENAC SODIUM. [Suspect]
     Active Substance: DICLOFENAC SODIUM
  4. FINASTERIDE. [Suspect]
     Active Substance: FINASTERIDE
     Dosage: 5 MG, QD
     Route: 065
  5. PARACETAMOL [Suspect]
     Active Substance: ACETAMINOPHEN
     Dosage: 325 MG
     Route: 065
  6. BUDESONIDE. [Suspect]
     Active Substance: BUDESONIDE
     Dosage: 0.5 MG
     Route: 065
  7. FLEXERIL [Suspect]
     Active Substance: CYCLOBENZAPRINE HYDROCHLORIDE
     Dosage: UNK
     Route: 065
  8. ALLOPURINOL. [Suspect]
     Active Substance: ALLOPURINOL
     Indication: PRODUCT USED FOR UNKNOWN INDICATION
     Dosage: 200 MG, QD
     Route: 065
  9. MELATONIN [Suspect]
     Active Substance: MELATONIN
     Dosage: 3 MG
  10. SALBUTAMOL SULFATE [Suspect]
     Active Substance: ALBUTEROL SULFATE
     Dosage: 2.5 MG
     Route: 065
  11. MAGNESIUM HYDROXIDE. [Suspect]
     Active Substance: MAGNESIUM HYDROXIDE
  12. THIAMINE. [Suspect]
     Active Substance: THIAMINE
     Dosage: 100 MG, QD
     Route: 065
  13. SENNOSIDES. [Suspect]
     Active Substance: SENNOSIDES
     Dosage: UNK
     Route: 065
  14. LOVENOX [Suspect]
     Active Substance: ENOXAPARIN SODIUM
     Indication: PRODUCT USED FOR UNKNOWN INDICATION
     Dosage: 40 MG
     Route: 065
  15. DICLOFENAC SODIUM. [Suspect]
     Active Substance: DICLOFENAC SODIUM
  16. DOCUSATE SODIUM. [Suspect]
     Active Substance: DOCUSATE SODIUM
     Dosage: 100 MG, BID
     Route: 065
  17. AMOXICILLIN TRIHYDRATE/POTASSIUM CLAVULANATE [Suspect]
     Active Substance: AMOXICILLIN\CLAVULANATE POTASSIUM
     Indication: PRODUCT USED FOR UNKNOWN INDICATION
     Dosage: 875 MG, BID
     Route: 065
  18. PRAVASTATIN SODIUM. [Suspect]
     Active Substance: PRAVASTATIN SODIUM
     Indication: PRODUCT USED FOR UNKNOWN INDICATION
     Dosage: 20 MG
     Route: 065
  19. DULCOLAX NOS [Suspect]
     Active Substance: BISACODYL OR DOCUSATE SODIUM
     Dosage: 10 MG
     Route: 065
  20. LACTULOSE. [Suspect]
     Active Substance: LACTULOSE
  21. SORBITOL. [Suspect]
     Active Substance: SORBITOL
  22. ENOX [BENZALKONIUM CHLORIDE;NORFLOXACIN] [Suspect]
     Active Substance: BENZALKONIUM CHLORIDE\NORFLOXACIN
     Dosage: UNK
     Route: 065
  23. POTASSIUM CHLORIDE. [Suspect]
     Active Substance: POTASSIUM CHLORIDE
  24. FOLIC ACID. [Suspect]
     Active Substance: FOLIC ACID
     Dosage: 1 MG, QD
     Route: 065
  25. PARACETAMOL [Suspect]
     Active Substance: ACETAMINOPHEN
  26. DUONEB [Suspect]
     Active Substance: ALBUTEROL SULFATE\IPRATROPIUM BROMIDE
     Dosage: 0.5 MG
  27. FLOMAX [Suspect]
     Active Substance: TAMSULOSIN HYDROCHLORIDE
     Indication: PRODUCT USED FOR UNKNOWN INDICATION
     Dosage: 4 MG, QD

REACTIONS (36)
  - Encephalopathy [Unknown]
  - Increased anteroposterior chest diameter [Unknown]
  - Dysphagia [Unknown]
  - Arthropathy [Unknown]
  - Hallucination [Unknown]
  - Rhonchi [Unknown]
  - Skin disorder [Unknown]
  - Impulsive behaviour [Unknown]
  - Distractibility [Unknown]
  - Cognitive disorder [Unknown]
  - Judgement impaired [Unknown]
  - Peripheral swelling [Unknown]
  - Erythema [Unknown]
  - Coordination abnormal [Unknown]
  - Hyporeflexia [Unknown]
  - Incontinence [Unknown]
  - Gait inability [Unknown]
  - Visual impairment [Unknown]
  - Cellulitis [Unknown]
  - Deep vein thrombosis [Unknown]
  - Confusional state [Unknown]
  - Alcoholism [Unknown]
  - Irritability [Unknown]
  - Asthenia [Unknown]
  - Joint range of motion decreased [Unknown]
  - Oedema [Unknown]
  - Eyelid disorder [Unknown]
  - Decreased appetite [Unknown]
  - Pain [Unknown]
  - Aggression [Unknown]
  - Feeding disorder [Unknown]
  - Disorientation [Unknown]
  - Memory impairment [Unknown]
  - Exercise tolerance decreased [Unknown]
  - Ataxia [Unknown]
  - Balance disorder [Unknown]

NARRATIVE: CASE EVENT DATE: 20201106
